FAERS Safety Report 5009748-1 (Version None)
Quarter: 2006Q2

REPORT INFORMATION
  Report Type: 
  Country: None (occurrence: None)
  Receive Date: 20060524
  Receipt Date: 19970429
  Transmission Date: 20061013
  Serious: Yes (Hospitalization)
  Sender: FDA-Public Use
  Company Number: FR-ROCHE-80802

PATIENT
  Age: 42 Year
  Sex: Male
  Weight: 59 kg

DRUGS (6)
  1. ROFERON-A [Suspect]
     Indication: HEPATITIS C
     Route: 058
     Dates: start: 19961016, end: 19970402
  2. RIBAVIRIN [Suspect]
     Indication: HEPATITIS C
     Route: 048
     Dates: start: 19961016, end: 19970402
  3. AUGMENTIN '125' [Suspect]
     Route: 048
     Dates: start: 19970322, end: 19970327
  4. IMODIUM [Concomitant]
     Route: 048
     Dates: start: 19890615
  5. DIFFU K [Concomitant]
     Route: 048
     Dates: start: 19910615
  6. EUROBIOL [Concomitant]
     Route: 048
     Dates: start: 19890615

REACTIONS (8)
  - ANAEMIA [None]
  - ANOREXIA [None]
  - ASTHENIA [None]
  - DEHYDRATION [None]
  - DIARRHOEA [None]
  - MICROCYTIC ANAEMIA [None]
  - NEPHROLITHIASIS [None]
  - RENAL COLIC [None]
